FAERS Safety Report 9530617 (Version 21)
Quarter: 2020Q1

REPORT INFORMATION
  Report Type: Report from Study
  Country: CA (occurrence: CA)
  Receive Date: 20130918
  Receipt Date: 20200306
  Transmission Date: 20200409
  Serious: Yes (Hospitalization, Other)
  Sender: FDA-Public Use
  Company Number: CA-ROCHE-1107891

PATIENT
  Age: 71 Year
  Sex: Male
  Weight: 80 kg

DRUGS (18)
  1. GLUCOPHAGE [Concomitant]
     Active Substance: METFORMIN HYDROCHLORIDE
     Route: 048
  2. ACTEMRA [Suspect]
     Active Substance: TOCILIZUMAB
     Route: 042
     Dates: start: 20150430, end: 20160714
  3. ACTEMRA [Suspect]
     Active Substance: TOCILIZUMAB
     Route: 042
     Dates: start: 201903
  4. PREDNISONE. [Concomitant]
     Active Substance: PREDNISONE
  5. ACTEMRA [Suspect]
     Active Substance: TOCILIZUMAB
     Route: 042
     Dates: start: 20131010, end: 20140130
  6. ACTEMRA [Suspect]
     Active Substance: TOCILIZUMAB
     Route: 042
     Dates: start: 20190403
  7. ACTEMRA [Suspect]
     Active Substance: TOCILIZUMAB
     Route: 042
     Dates: start: 20190403
  8. ACTEMRA [Suspect]
     Active Substance: TOCILIZUMAB
     Route: 042
     Dates: start: 20141113
  9. ACTEMRA [Suspect]
     Active Substance: TOCILIZUMAB
     Dosage: INFUSIION NO. 74
     Route: 042
     Dates: start: 20180426
  10. ACTEMRA [Suspect]
     Active Substance: TOCILIZUMAB
     Route: 042
     Dates: start: 20170525
  11. ACTEMRA [Suspect]
     Active Substance: TOCILIZUMAB
     Route: 042
     Dates: start: 20190306
  12. METFORMIN [Concomitant]
     Active Substance: METFORMIN HYDROCHLORIDE
     Route: 065
  13. ACTEMRA [Suspect]
     Active Substance: TOCILIZUMAB
     Indication: RHEUMATOID ARTHRITIS
     Route: 042
     Dates: start: 20120627, end: 20130912
  14. ACTEMRA [Suspect]
     Active Substance: TOCILIZUMAB
     Route: 042
     Dates: start: 20140227, end: 20140918
  15. PANTOPRAZOL [PANTOPRAZOLE] [Concomitant]
     Active Substance: PANTOPRAZOLE
  16. GLUCOPHAGE [Concomitant]
     Active Substance: METFORMIN HYDROCHLORIDE
     Indication: DIABETES MELLITUS
     Route: 048
  17. ACTEMRA [Suspect]
     Active Substance: TOCILIZUMAB
     Route: 042
     Dates: start: 20160811
  18. FOSAVANCE [Concomitant]
     Active Substance: ALENDRONATE SODIUM\CHOLECALCIFEROL

REACTIONS (29)
  - Pain [Unknown]
  - Weight increased [Recovered/Resolved]
  - Body temperature decreased [Unknown]
  - Cholelithiasis [Unknown]
  - Blood pressure systolic increased [Unknown]
  - Fall [Unknown]
  - Blood pressure fluctuation [Unknown]
  - Cough [Not Recovered/Not Resolved]
  - Hypotension [Unknown]
  - Blood pressure fluctuation [Unknown]
  - Nasopharyngitis [Recovering/Resolving]
  - Oropharyngeal pain [Recovering/Resolving]
  - Weight decreased [Unknown]
  - Disability assessment scale score increased [Unknown]
  - Skin laceration [Recovering/Resolving]
  - Joint effusion [Recovered/Resolved]
  - Infusion related reaction [Unknown]
  - Musculoskeletal stiffness [Unknown]
  - Nasopharyngitis [Not Recovered/Not Resolved]
  - Body temperature decreased [Unknown]
  - White blood cell count decreased [Unknown]
  - Hand fracture [Unknown]
  - Pneumonia [Recovered/Resolved]
  - Arthralgia [Not Recovered/Not Resolved]
  - Abdominal pain upper [Unknown]
  - Heart rate decreased [Unknown]
  - Rhinorrhoea [Not Recovered/Not Resolved]
  - Influenza [Recovered/Resolved]
  - Blood pressure diastolic decreased [Unknown]

NARRATIVE: CASE EVENT DATE: 20120812
